FAERS Safety Report 8024094-X (Version None)
Quarter: 2011Q4

REPORT INFORMATION
  Report Type: 
  Country: None (occurrence: None)
  Receive Date: 20111130
  Receipt Date: 20101223
  Transmission Date: 20120403
  Serious: Yes (Other)
  Sender: FDA-Public Use
  Company Number: 316643

PATIENT
  Age: 71 Year
  Sex: Male

DRUGS (3)
  1. LANTUS [Suspect]
     Indication: TYPE 2 DIABETES MELLITUS
     Dosage: BID, SUBCUTANEOUS, QD, SUBCUTANEOUS, 50 IU, QD, SUBCUTANEOUS, 44 IU, QD, SUBCUTANEOUS
     Route: 058
     Dates: start: 20080101
  2. LANTUS [Suspect]
     Indication: TYPE 2 DIABETES MELLITUS
     Dosage: BID, SUBCUTANEOUS, QD, SUBCUTANEOUS, 50 IU, QD, SUBCUTANEOUS, 44 IU, QD, SUBCUTANEOUS
     Route: 058
     Dates: end: 20080101
  3. NOVOLOG [Suspect]
     Indication: TYPE 2 DIABETES MELLITUS
     Dosage: 45 IU, QD, SUBCUTANEOUS
     Route: 058

REACTIONS (1)
  - HYPOGLYCAEMIC COMA [None]
